FAERS Safety Report 4622741-3 (Version None)
Quarter: 2005Q1

REPORT INFORMATION
  Report Type: 
  Country: None (occurrence: None)
  Receive Date: 20050329
  Receipt Date: 20050329
  Transmission Date: 20050727
  Serious: No
  Sender: FDA-Public Use
  Company Number: None

PATIENT
  Sex: Female
  Weight: 59.54 kg

DRUGS (13)
  1. GEMCITABINE [Suspect]
     Dosage: 1500 MG/M2 IV OVER 150 MIN, Q WK. X3 EVERY 4 WEEKS
     Route: 042
     Dates: start: 20050203
  2. BACTRIM [Concomitant]
  3. COLACE [Concomitant]
  4. DULCOLAX [Concomitant]
  5. FLEET [Concomitant]
  6. LACTULOSE [Concomitant]
  7. LOVENOX [Concomitant]
  8. MORPHINE [Concomitant]
  9. OXYCONTIN [Concomitant]
  10. PERCOCET [Concomitant]
  11. PROCRIT [Concomitant]
  12. PROTONIX [Concomitant]
  13. ZOFRAN [Concomitant]

REACTIONS (11)
  - ABDOMINAL PAIN [None]
  - CONSTIPATION [None]
  - DECREASED APPETITE [None]
  - DEEP VEIN THROMBOSIS [None]
  - DYSPNOEA [None]
  - HEADACHE [None]
  - NAUSEA [None]
  - PULMONARY ARTERY THROMBOSIS [None]
  - PULMONARY EMBOLISM [None]
  - THROMBOCYTOPENIA [None]
  - VOMITING [None]
